FAERS Safety Report 5928101-7 (Version None)
Quarter: 2008Q4

REPORT INFORMATION
  Report Type: 
  Country: None (occurrence: None)
  Receive Date: 20081023
  Receipt Date: 20081017
  Transmission Date: 20090506
  Serious: Yes (Disabling, Other)
  Sender: FDA-Public Use
  Company Number: D0053977A

PATIENT
  Age: 73 Year
  Sex: Male
  Weight: 78 kg

DRUGS (5)
  1. AVODART [Suspect]
     Indication: BENIGN PROSTATIC HYPERPLASIA
     Dosage: .5MG PER DAY
     Route: 048
     Dates: start: 20070126, end: 20080914
  2. METOPROLOL SUCCINATE [Suspect]
     Indication: HYPERTENSION
     Dosage: 47.5MG TWICE PER DAY
     Route: 048
     Dates: start: 19950101
  3. APROVEL [Suspect]
     Indication: HYPERTENSION
     Dosage: 75MG PER DAY
     Route: 048
     Dates: start: 20060904, end: 20070712
  4. TOLVIN [Suspect]
     Dosage: 60MG PER DAY
     Route: 048
     Dates: start: 19950101
  5. OMNIC [Concomitant]
     Indication: BENIGN PROSTATIC HYPERPLASIA
     Dosage: .4MG PER DAY
     Route: 048
     Dates: start: 20061121

REACTIONS (9)
  - APHONIA [None]
  - COUGH [None]
  - GINGIVAL SWELLING [None]
  - GLOSSODYNIA [None]
  - HYPERSENSITIVITY [None]
  - OEDEMA MUCOSAL [None]
  - SPUTUM DISCOLOURED [None]
  - THROAT IRRITATION [None]
  - TONGUE COATED [None]
